FAERS Safety Report 15329316 (Version 1)
Quarter: 2018Q3

REPORT INFORMATION
  Report Type: Spontaneous
  Country: US (occurrence: US)
  Receive Date: 20180829
  Receipt Date: 20180829
  Transmission Date: 20181010
  Serious: Yes (Other)
  Sender: FDA-Public Use
  Company Number: US-LPDUSPRD-20181550

PATIENT
  Sex: Male
  Weight: 113.4 kg

DRUGS (1)
  1. INJECTAFER [Suspect]
     Active Substance: FERRIC CARBOXYMALTOSE
     Dosage: UNKNOWN (INITIAL DOSE)
     Route: 065

REACTIONS (7)
  - Agitation [Unknown]
  - Blood pressure increased [Unknown]
  - Epigastric discomfort [Unknown]
  - Feeling hot [Unknown]
  - Erythema [Unknown]
  - Dyspnoea [Unknown]
  - Flushing [Unknown]

NARRATIVE: CASE EVENT DATE: 20180817
